FAERS Safety Report 16707075 (Version 1)
Quarter: 2019Q3

REPORT INFORMATION
  Report Type: Spontaneous
  Country: US (occurrence: US)
  Receive Date: 20190815
  Receipt Date: 20190815
  Transmission Date: 20191004
  Serious: No
  Sender: FDA-Public Use
  Company Number: US-THERAPEUTICSMD-2019TMD02143

PATIENT
  Age: 67 Year
  Sex: Female
  Weight: 72.56 kg

DRUGS (6)
  1. ATORVASTATIN [Concomitant]
     Active Substance: ATORVASTATIN
     Dosage: 40 MG, 1X/DAY IN THE EVENING
  2. BIJUVA [Suspect]
     Active Substance: ESTRADIOL\PROGESTERONE
     Indication: HOT FLUSH
  3. CENTRUM [Concomitant]
     Active Substance: VITAMINS
     Dosage: 1 TABLETS, 1X/DAY
  4. OSCAL [Concomitant]
     Active Substance: CALCIUM CARBONATE
     Dosage: 1 TABLETS, 2X/DAY
  5. BABY ASPIRIN [Concomitant]
     Active Substance: ASPIRIN
     Dosage: 1 TABLETS, 1X/DAY
  6. BIJUVA [Suspect]
     Active Substance: ESTRADIOL\PROGESTERONE
     Indication: MENOPAUSAL SYMPTOMS
     Dosage: 1 CAPSULES, 1X/DAY IN EVENING WITH FOOD
     Route: 048
     Dates: start: 20190628, end: 20190713

REACTIONS (1)
  - Nipple pain [Recovered/Resolved]

NARRATIVE: CASE EVENT DATE: 201907
